FAERS Safety Report 8224987-4 (Version None)
Quarter: 2012Q1

REPORT INFORMATION
  Report Type: 
  Country: None (occurrence: None)
  Receive Date: 20120319
  Receipt Date: 20120306
  Transmission Date: 20120608
  Serious: Yes (Other)
  Sender: FDA-Public Use
  Company Number: E2B_7116963

PATIENT
  Age: 56 Year
  Sex: Female

DRUGS (2)
  1. LEVOTHYROXINE SODIUM [Suspect]
     Indication: PRODUCT USED FOR UNKNOWN INDICATION
     Dosage: 50 MCG (50 MCG,1 IN 1 D) ORAL
     Route: 048
     Dates: start: 20110517
  2. RISEDRONIC ACID (RISEDRONIC ACID) (RISEDRONIC ACID) [Suspect]
     Indication: BONE DISORDER
     Dosage: (50 MG,1 IN 1 WK) ORAL
     Route: 048
     Dates: start: 20110517, end: 20111124

REACTIONS (4)
  - RESPIRATORY DISTRESS [None]
  - HYPERTENSION [None]
  - TACHYCARDIA [None]
  - DYSPNOEA EXERTIONAL [None]
